FAERS Safety Report 25919833 (Version 1)
Quarter: 2025Q4

REPORT INFORMATION
  Report Type: Spontaneous
  Country: US (occurrence: US)
  Receive Date: 20251014
  Receipt Date: 20251014
  Transmission Date: 20260117
  Serious: Yes (Other)
  Sender: APELLIS PHARMACEUTICALS
  Company Number: US-APELLIS-2025-APL-0001829

PATIENT

DRUGS (10)
  1. SYFOVRE [Suspect]
     Active Substance: PEGCETACOPLAN
     Indication: Dry age-related macular degeneration
     Dosage: OS, INTRAVITREAL INJECTION OF SYFOVRE 15MG/0.1 ML, Q9WK
     Route: 031
  2. SYFOVRE [Suspect]
     Active Substance: PEGCETACOPLAN
     Dosage: OD, INTRAVITREAL INJECTION OF SYFOVRE 15MG/0.1 ML, Q9WK
     Route: 031
  3. Artificial tears [Concomitant]
     Indication: Product used for unknown indication
     Dosage: 1 GTT PRN OU
     Route: 050
  4. MINERALS\VITAMINS [Concomitant]
     Active Substance: MINERALS\VITAMINS
     Indication: Product used for unknown indication
     Dosage: 1 TABLET BID BY MOUTH
     Route: 048
  5. PRADAXA [Concomitant]
     Active Substance: DABIGATRAN ETEXILATE MESYLATE
     Indication: Product used for unknown indication
     Dosage: 150 MG ORAL CAPSULE 1 TABLET BY MOUTH
     Route: 048
  6. GABAPENTIN [Concomitant]
     Active Substance: GABAPENTIN
     Indication: Product used for unknown indication
     Dosage: 600 MG ORAL TABLET 1 TABLET BY MOUTH
     Route: 048
  7. TERAZOSIN [Concomitant]
     Active Substance: TERAZOSIN HYDROCHLORIDE
     Indication: Product used for unknown indication
     Dosage: 5 MG ORAL CAPSULE 1 TABLET BY MOUTH.
     Route: 048
  8. ROSUVASTATIN CALCIUM [Concomitant]
     Active Substance: ROSUVASTATIN CALCIUM
     Indication: Product used for unknown indication
     Dosage: 40MG ORAL TABLET 1 TABLET BY MOUTH.
     Route: 048
  9. METHOTREXATE [Concomitant]
     Active Substance: METHOTREXATE
     Indication: Product used for unknown indication
     Dosage: 2.5 MG 6 TABLET BY MOUTH.
     Route: 048
  10. SPIRONOLACTONE [Concomitant]
     Active Substance: SPIRONOLACTONE
     Indication: Product used for unknown indication
     Dosage: 25 MG 1 TABLET BY MOUTH
     Route: 048

REACTIONS (3)
  - Endophthalmitis [Recovering/Resolving]
  - Ocular ischaemic syndrome [Unknown]
  - Retinal vein occlusion [Unknown]
